FAERS Safety Report 18051530 (Version 1)
Quarter: 2020Q3

REPORT INFORMATION
  Report Type: Spontaneous
  Country: US (occurrence: US)
  Receive Date: 20200721
  Receipt Date: 20200721
  Transmission Date: 20201103
  Serious: Yes (Other)
  Sender: FDA-Public Use
  Company Number: US-AMERICAN REGENT INC-2020001417

PATIENT
  Age: 19 Year
  Sex: Female

DRUGS (4)
  1. ATROPINE SULFATE INJECTION, USP (0101?25) [Suspect]
     Active Substance: ATROPINE SULFATE
     Dosage: 1 MILLIGRAM
     Route: 042
  2. IVABRADINE [Concomitant]
     Active Substance: IVABRADINE
     Dosage: 20?30 TABS OF 7.5 MG ALL AT ONCE
     Route: 048
  3. IVABRADINE [Concomitant]
     Active Substance: IVABRADINE
     Indication: SINUS TACHYCARDIA
     Dosage: 7.5 MILLIGRAM, BID
     Route: 048
  4. ATROPINE SULFATE INJECTION, USP (0101?25) [Suspect]
     Active Substance: ATROPINE SULFATE
     Indication: BRADYCARDIA
     Dosage: 1 MILLIGRAM
     Route: 042

REACTIONS (3)
  - Drug ineffective for unapproved indication [Recovered/Resolved]
  - Bradycardia [Recovered/Resolved]
  - Product use in unapproved indication [Unknown]
